FAERS Safety Report 9322850 (Version 2)
Quarter: 2013Q3

REPORT INFORMATION
  Report Type: Spontaneous
  Country: BR (occurrence: BR)
  Receive Date: 20130602
  Receipt Date: 20130805
  Transmission Date: 20140515
  Serious: Yes (Other)
  Sender: FDA-Public Use
  Company Number: PHHY2013BR054833

PATIENT
  Sex: Male
  Weight: 70 kg

DRUGS (1)
  1. RITALINA [Suspect]
     Indication: ATTENTION DEFICIT/HYPERACTIVITY DISORDER
     Dosage: 1 DF, QD (ONE HOUR BEFORE SCHOOL)
     Route: 048

REACTIONS (6)
  - Panic disorder [Not Recovered/Not Resolved]
  - Irritability [Not Recovered/Not Resolved]
  - Tension [Not Recovered/Not Resolved]
  - Nervousness [Not Recovered/Not Resolved]
  - Agitation [Unknown]
  - Psychomotor hyperactivity [Not Recovered/Not Resolved]
